FAERS Safety Report 10024005 (Version 2)
Quarter: 2014Q2

REPORT INFORMATION
  Report Type: Spontaneous
  Country: US (occurrence: None)
  Receive Date: 20140318
  Receipt Date: 20140401
  Transmission Date: 20141212
  Serious: Yes (Hospitalization, Other)
  Sender: FDA-Public Use
  Company Number: 2012-001695

PATIENT
  Age: 58 Year
  Sex: Female
  Weight: 56.7 kg

DRUGS (24)
  1. ACTONEL [Suspect]
     Indication: OSTEOPOROSIS
     Dosage: 35 MG ONCE WEEKLY, ORAL
     Route: 048
     Dates: start: 200404, end: 200805
  2. ACTONEL [Suspect]
     Indication: OSTEOPENIA
     Dosage: 35 MG ONCE WEEKLY, ORAL
     Route: 048
     Dates: start: 200404, end: 200805
  3. ACTONEL [Suspect]
     Indication: OSTEOPOROSIS
     Dosage: 5 MG ONCE DAILY, ORAL
     Route: 048
     Dates: start: 20020520, end: 200212
  4. ACTONEL [Suspect]
     Indication: OSTEOPENIA
     Dosage: 5 MG ONCE DAILY, ORAL
     Route: 048
     Dates: start: 20020520, end: 200212
  5. ACTONEL [Suspect]
     Indication: OSTEOPOROSIS
     Dosage: DOSAGE/FREQUENCY UNKNOWN
     Dates: start: 200104
  6. ACTONEL [Suspect]
     Indication: OSTEOPENIA
     Dosage: DOSAGE/FREQUENCY UNKNOWN
     Dates: start: 200104
  7. FOSAMAX [Suspect]
     Indication: OSTEOPOROSIS
     Dosage: DOSAGE/FREQUENCY UNKNOWN
     Dates: start: 200805, end: 201004
  8. FOSAMAX [Suspect]
     Indication: OSTEOPENIA
     Dosage: DOSAGE/FREQUENCY UNKNOWN
     Dates: start: 200805, end: 201004
  9. ALENDRONATE (ALENDRONATE SODIUM) [Suspect]
     Indication: OSTEOPOROSIS
     Dosage: 70 MG ONCE WEEKLY, ORAL
     Route: 048
     Dates: start: 200809, end: 201006
  10. ALENDRONATE (ALENDRONATE SODIUM) [Suspect]
     Indication: OSTEOPENIA
     Dosage: 70 MG ONCE WEEKLY, ORAL
     Route: 048
     Dates: start: 200809, end: 201006
  11. SIMVASTATIN ( SIMVASTATIN) [Concomitant]
  12. PLAVIX ( CLOPIDOGREL BISULFATE) [Concomitant]
  13. ECOTRIN ( ACETYLSALICYLIC ACID) [Concomitant]
  14. PLETAL ( CILOSTAZOL) [Concomitant]
  15. CELEBREX ( CELECOXIB) [Concomitant]
  16. HYDROCODONE W/APAP ( HYDROCODONE, PARACETAMOL) [Concomitant]
  17. ZOLOFT ( SERTRALINE HYDROCHLORIDE) ( SERTRALINE HYDROCHLORIDE) [Concomitant]
  18. AMBIEN ( ZOLPIDEM TARTRATE) [Concomitant]
  19. DEPAKOTE ( VALPROATE SEMISODIUM) [Concomitant]
  20. PSEUDOVENT ( GUAIFENESIN, PSEUDOEPHEDRINE HYDROCHLORIDE) [Concomitant]
  21. AMOXICILLIN ( AMOXICILLIN) [Concomitant]
  22. CEFADROXIL ( CEFADROXIL) [Concomitant]
  23. LEVAQUIN ( LEVOFLOXACIN) [Concomitant]
  24. LAMISIL ( TERBINAFINE HYDROCHLORIDE) [Concomitant]

REACTIONS (10)
  - Stress fracture [None]
  - Femur fracture [None]
  - Arthralgia [None]
  - Flank pain [None]
  - Weight bearing difficulty [None]
  - Pain in extremity [None]
  - Groin pain [None]
  - Osteogenesis imperfecta [None]
  - Bone disorder [None]
  - Low turnover osteopathy [None]
